FAERS Safety Report 25087149 (Version 1)
Quarter: 2025Q1

REPORT INFORMATION
  Report Type: Spontaneous
  Country: US (occurrence: US)
  Receive Date: 20250318
  Receipt Date: 20250318
  Transmission Date: 20250409
  Serious: Yes (Death)
  Sender: AMGEN
  Company Number: US-AMGEN-USASP2025050748

PATIENT
  Age: 72 Year
  Sex: Male

DRUGS (5)
  1. BEVACIZUMAB [Suspect]
     Active Substance: BEVACIZUMAB
     Indication: Hormone-refractory prostate cancer
     Route: 065
  2. DOCETAXEL [Concomitant]
     Active Substance: DOCETAXEL
  3. SIPULEUCEL-T [Concomitant]
     Active Substance: SIPULEUCEL-T
  4. ABIRATERONE [Concomitant]
     Active Substance: ABIRATERONE
  5. ENZALUTAMIDE [Concomitant]
     Active Substance: ENZALUTAMIDE

REACTIONS (3)
  - Death [Fatal]
  - Prostatic specific antigen increased [Unknown]
  - Off label use [Unknown]
